FAERS Safety Report 5026551-7 (Version None)
Quarter: 2006Q2

REPORT INFORMATION
  Report Type: 
  Country: None (occurrence: None)
  Receive Date: 20060615
  Receipt Date: 20060608
  Transmission Date: 20061013
  Serious: Yes (Hospitalization)
  Sender: FDA-Public Use
  Company Number: FR-AVENTIS-200612089FR

PATIENT
  Age: 35 Year
  Sex: Male

DRUGS (10)
  1. FLAGYL [Suspect]
     Indication: DRUG USE FOR UNKNOWN INDICATION
     Route: 048
     Dates: start: 20060507, end: 20060512
  2. RULID [Suspect]
     Indication: DRUG USE FOR UNKNOWN INDICATION
     Route: 048
     Dates: start: 20060507, end: 20060512
  3. DEPAKENE [Suspect]
     Indication: EPILEPSY
     Route: 048
     Dates: end: 20060512
  4. FRAGMIN [Suspect]
     Indication: DRUG USE FOR UNKNOWN INDICATION
     Route: 058
     Dates: end: 20060512
  5. ZOLOFT [Suspect]
     Indication: DEPRESSION
     Route: 048
     Dates: end: 20060512
  6. ZYPREXA [Suspect]
     Indication: MENTAL DISORDER
     Route: 048
     Dates: end: 20060512
  7. LIORESAL [Concomitant]
     Indication: DRUG USE FOR UNKNOWN INDICATION
     Route: 048
  8. TRANXENE [Concomitant]
     Indication: DRUG USE FOR UNKNOWN INDICATION
     Route: 048
  9. DIFFU K [Concomitant]
     Indication: DRUG USE FOR UNKNOWN INDICATION
  10. MOTILIUM [Concomitant]
     Route: 048

REACTIONS (1)
  - PANCREATITIS [None]
